FAERS Safety Report 8830119 (Version 1)
Quarter: 2012Q4

REPORT INFORMATION
  Report Type: 
  Country: PT (occurrence: PT)
  Receive Date: 20121008
  Receipt Date: 20121008
  Transmission Date: 20130627
  Serious: Yes (Life-Threatening)
  Sender: FDA-Public Use
  Company Number: DK-ASTRAZENECA-2012SE76201

PATIENT
  Age: 26 Year
  Sex: Male

DRUGS (4)
  1. PROPOFOL [Suspect]
     Indication: INDUCTION OF ANAESTHESIA
     Route: 042
  2. FENTANYL [Suspect]
     Dosage: 3 UG/KG
  3. ROCURONIUM [Suspect]
     Dosage: 0.6 MG/KG
  4. SEVOFLURANE [Suspect]
     Indication: ANAESTHESIA PROCEDURE

REACTIONS (1)
  - Status epilepticus [Recovered/Resolved]
